FAERS Safety Report 7132062-5 (Version None)
Quarter: 2010Q4

REPORT INFORMATION
  Report Type: 
  Country: None (occurrence: None)
  Receive Date: 20101202
  Receipt Date: 20101119
  Transmission Date: 20110411
  Serious: Yes (Hospitalization, Other)
  Sender: FDA-Public Use
  Company Number: PHEH2009US01787

PATIENT
  Sex: Female

DRUGS (7)
  1. ZELNORM [Suspect]
     Dosage: UNK
     Dates: start: 20030301
  2. NORVASC [Concomitant]
  3. CRESTOR [Concomitant]
  4. TOPROL-XL [Concomitant]
  5. XANAX [Concomitant]
  6. ASPIRIN [Concomitant]
  7. ATENOLOL [Concomitant]
     Indication: HYPERTENSION
     Dosage: 50 MG, QD

REACTIONS (68)
  - ABDOMINAL PAIN UPPER [None]
  - ACUTE RESPIRATORY FAILURE [None]
  - ANAEMIA [None]
  - ANXIETY [None]
  - APHASIA [None]
  - ASTHENIA [None]
  - ASTHMA [None]
  - ATELECTASIS [None]
  - BLOOD CHOLESTEROL INCREASED [None]
  - BLOOD TRIGLYCERIDES INCREASED [None]
  - BRONCHITIS [None]
  - CARDIAC DISORDER [None]
  - CARDIAC OPERATION [None]
  - CARDIAC PROCEDURE COMPLICATION [None]
  - CARDIOMEGALY [None]
  - CAROTID ARTERIOSCLEROSIS [None]
  - CATHETERISATION CARDIAC [None]
  - CHEST DISCOMFORT [None]
  - CHEST PAIN [None]
  - CONSTIPATION [None]
  - CORONARY ARTERY BYPASS [None]
  - CORONARY ARTERY DISEASE [None]
  - CORONARY ARTERY STENOSIS [None]
  - COSTOCHONDRITIS [None]
  - COUGH [None]
  - DEPRESSION [None]
  - DIZZINESS [None]
  - DYSPNOEA [None]
  - ELECTROCARDIOGRAM ST SEGMENT DEPRESSION [None]
  - EMPHYSEMA [None]
  - GASTROENTERITIS [None]
  - GASTROOESOPHAGEAL REFLUX DISEASE [None]
  - HAEMATEMESIS [None]
  - HEADACHE [None]
  - HYPERCHOLESTEROLAEMIA [None]
  - HYPOAESTHESIA [None]
  - HYPOXIA [None]
  - INJURY [None]
  - INSOMNIA [None]
  - JOINT INJURY [None]
  - LOW DENSITY LIPOPROTEIN INCREASED [None]
  - MEMORY IMPAIRMENT [None]
  - MYOCARDIAL ISCHAEMIA [None]
  - NASAL CONGESTION [None]
  - NAUSEA [None]
  - NIGHT SWEATS [None]
  - OPEN WOUND [None]
  - OVERWEIGHT [None]
  - PAIN [None]
  - PALPITATIONS [None]
  - PARAESTHESIA [None]
  - PLEURAL EFFUSION [None]
  - PLEURISY [None]
  - PNEUMONIA [None]
  - POSTOPERATIVE THORACIC PROCEDURE COMPLICATION [None]
  - POSTPERICARDIOTOMY SYNDROME [None]
  - PRESYNCOPE [None]
  - PULMONARY CONGESTION [None]
  - RESPIRATORY DISTRESS [None]
  - ROAD TRAFFIC ACCIDENT [None]
  - SINUS TACHYCARDIA [None]
  - SURGERY [None]
  - THORACOTOMY [None]
  - THROAT TIGHTNESS [None]
  - VASCULAR CAUTERISATION [None]
  - VENTRICULAR EXTRASYSTOLES [None]
  - VERTIGO [None]
  - VOMITING [None]
